FAERS Safety Report 6043374-0 (Version None)
Quarter: 2009Q1

REPORT INFORMATION
  Report Type: 
  Country: None (occurrence: None)
  Receive Date: 20090120
  Receipt Date: 20090113
  Transmission Date: 20090719
  Serious: Yes (Other)
  Sender: FDA-Public Use
  Company Number: JP-JNJFOC-20090101371

PATIENT
  Sex: Male
  Weight: 90 kg

DRUGS (9)
  1. RISPERDAL [Suspect]
     Route: 048
  2. RISPERDAL [Suspect]
     Route: 048
  3. RISPERDAL [Suspect]
     Route: 048
  4. RISPERDAL [Suspect]
     Indication: SCHIZOPHRENIA
     Route: 048
  5. HIRNAMIN [Concomitant]
     Route: 048
  6. HIRNAMIN [Concomitant]
     Indication: INSOMNIA
     Route: 048
  7. BENZALIN [Concomitant]
     Indication: INSOMNIA
     Route: 048
  8. BIPERIDEN HYDROCHLORIDE TAB [Concomitant]
     Route: 048
  9. BIPERIDEN HYDROCHLORIDE TAB [Concomitant]
     Indication: AKATHISIA
     Route: 048

REACTIONS (1)
  - OBSESSIVE-COMPULSIVE DISORDER [None]
